FAERS Safety Report 5378345-0 (Version None)
Quarter: 2007Q3

REPORT INFORMATION
  Report Type: 
  Country: None (occurrence: None)
  Receive Date: 20070702
  Receipt Date: 20070702
  Transmission Date: 20080115
  Serious: Yes (Other)
  Sender: FDA-Public Use
  Company Number: None

PATIENT
  Age: 54 Year
  Sex: Female
  Weight: 81.6475 kg

DRUGS (1)
  1. PROVENTIL [Suspect]
     Indication: ASTHMA EXERCISE INDUCED
     Dosage: TOOK ONE PUFF 1X INHAL
     Route: 055
     Dates: start: 20070623, end: 20070623

REACTIONS (8)
  - ASTHMA [None]
  - CHOKING [None]
  - CONDITION AGGRAVATED [None]
  - FUNGAL INFECTION [None]
  - GASTROINTESTINAL FUNGAL INFECTION [None]
  - LUNG INFECTION [None]
  - PHARYNGITIS [None]
  - SYSTEMIC CANDIDA [None]
